FAERS Safety Report 7002170-8 (Version None)
Quarter: 2010Q3

REPORT INFORMATION
  Report Type: 
  Country: None (occurrence: None)
  Receive Date: 20100920
  Receipt Date: 20091111
  Transmission Date: 20110219
  Serious: Yes (Hospitalization)
  Sender: FDA-Public Use
  Company Number: US-ASTRAZENECA-2009SE26098

PATIENT
  Age: 81 Year
  Sex: Male

DRUGS (1)
  1. SEROQUEL [Suspect]
     Dosage: THREE TIMES A DAY
     Route: 048

REACTIONS (1)
  - UNRESPONSIVE TO STIMULI [None]
